FAERS Safety Report 18502331 (Version 1)
Quarter: 2020Q4

REPORT INFORMATION
  Report Type: Other
  Country: US (occurrence: US)
  Receive Date: 20201113
  Receipt Date: 20201113
  Transmission Date: 20210114
  Serious: No
  Sender: FDA-Public Use
  Company Number: US-LEADIANT BIOSCIENCES INC-2020STPI000252

PATIENT
  Age: 9 Year
  Sex: Female

DRUGS (12)
  1. ONDANSETRON [Concomitant]
     Active Substance: ONDANSETRON
  2. CYTRA-K [Concomitant]
     Active Substance: CITRIC ACID MONOHYDRATE\POTASSIUM CITRATE
  3. CYSTARAN [Suspect]
     Active Substance: CYSTEAMINE HYDROCHLORIDE
     Indication: CYSTINOSIS
     Dosage: ONE DROP SIX TIMES DAILY
     Route: 047
     Dates: start: 20160914
  4. D-VI-SOL [Concomitant]
  5. LEVOCARNITIN [Concomitant]
  6. PROCYSBI [Concomitant]
     Active Substance: CYSTEAMINE BITARTRATE
  7. MUPIROCIN. [Concomitant]
     Active Substance: MUPIROCIN
  8. OMNITROPE [Concomitant]
     Active Substance: SOMATROPIN
  9. K PHOS NEUTRAL [Concomitant]
     Active Substance: POTASSIUM PHOSPHATE, MONOBASIC\SODIUM PHOSPHATE, DIBASIC, ANHYDROUS\SODIUM PHOSPHATE, MONOBASIC, MONOHYDRATE
  10. IRON SUPPLEMENT WITH VIT C + HERBS [Concomitant]
     Active Substance: IRON\VITAMINS
  11. TRIAMCINOLONE [Concomitant]
     Active Substance: TRIAMCINOLONE
  12. ENDOMETRIN [Concomitant]
     Active Substance: PROGESTERONE

REACTIONS (2)
  - Foreign body sensation in eyes [Recovered/Resolved]
  - Conjunctivitis [Recovered/Resolved]

NARRATIVE: CASE EVENT DATE: 202003
